FAERS Safety Report 5008184-1 (Version None)
Quarter: 2006Q2

REPORT INFORMATION
  Report Type: 
  Country: None (occurrence: None)
  Receive Date: 20060404
  Receipt Date: 20050713
  Transmission Date: 20061013
  Serious: Yes (Other)
  Sender: FDA-Public Use
  Company Number: 2004038106

PATIENT
  Age: 45 Year
  Sex: Female
  Weight: 83.9154 kg

DRUGS (12)
  1. GEODON [Suspect]
     Indication: BIPOLAR DISORDER
     Dosage: ORAL
     Route: 048
     Dates: start: 20040401, end: 20040501
  2. SERTRALINE HCL [Concomitant]
  3. ABILIFY [Concomitant]
  4. CYCLOBENZAPRINE HCL [Concomitant]
  5. KLONOPIN [Concomitant]
  6. LITHIUM (LITHIUM) [Concomitant]
  7. NAPROSYN [Concomitant]
  8. NASONEX [Concomitant]
  9. PROZAC [Concomitant]
  10. REMERON [Concomitant]
  11. ZYRTEC [Concomitant]
  12. CELEXA [Concomitant]

REACTIONS (4)
  - BLOOD TRIGLYCERIDES INCREASED [None]
  - BUNDLE BRANCH BLOCK LEFT [None]
  - ELECTROCARDIOGRAM QRS COMPLEX PROLONGED [None]
  - ELECTROCARDIOGRAM QT PROLONGED [None]
